FAERS Safety Report 8761655 (Version 1)
Quarter: 2012Q4

REPORT INFORMATION
  Report Type: Spontaneous
  Country: US (occurrence: None)
  Receive Date: 20120830
  Receipt Date: 20120830
  Transmission Date: 20130627
  Serious: Yes (Other)
  Sender: FDA-Public Use
  Company Number: None

PATIENT
  Age: 28 Year
  Sex: Female

DRUGS (2)
  1. OXCARBAZEPINE [Suspect]
     Indication: EPILEPSY
     Dosage: 1 QAM + 1 1/2 QPM
     Dates: start: 20080219, end: 20120802
  2. OXCARBAZEPINE [Suspect]
     Indication: EPILEPSY

REACTIONS (2)
  - Drug ineffective [None]
  - Convulsion [None]
